FAERS Safety Report 6328332-0 (Version None)
Quarter: 2009Q3

REPORT INFORMATION
  Report Type: 
  Country: None (occurrence: None)
  Receive Date: 20090825
  Receipt Date: 20090521
  Transmission Date: 20100115
  Serious: No
  Sender: FDA-Public Use
  Company Number: US-ABBOTT-09P-163-0575271-00

PATIENT
  Sex: Female

DRUGS (2)
  1. SYNTHROID [Suspect]
     Indication: HYPOTHYROIDISM
     Route: 048
     Dates: start: 19830101, end: 20090518
  2. SYNTHROID [Suspect]
     Route: 048
     Dates: start: 20090519

REACTIONS (2)
  - HYPOTHYROIDISM [None]
  - THYROID FUNCTION TEST ABNORMAL [None]
